FAERS Safety Report 14230075 (Version 1)
Quarter: 2017Q4

REPORT INFORMATION
  Report Type: Spontaneous
  Country: PT (occurrence: PT)
  Receive Date: 20171128
  Receipt Date: 20171128
  Transmission Date: 20180321
  Serious: Yes (Hospitalization)
  Sender: FDA-Public Use
  Company Number: PT-VISTAPHARM, INC.-VER201711-001114

PATIENT
  Age: 78 Year
  Sex: Female

DRUGS (2)
  1. HYDROCODONE AND ACETAMINOPHEN [Suspect]
     Active Substance: ACETAMINOPHEN\HYDROCODONE
     Indication: ARTHRALGIA
  2. HYDROCODONE AND ACETAMINOPHEN [Suspect]
     Active Substance: ACETAMINOPHEN\HYDROCODONE
     Indication: BODY TEMPERATURE INCREASED
     Route: 048

REACTIONS (2)
  - Methaemoglobinaemia [Recovered/Resolved]
  - Self-medication [Unknown]
